FAERS Safety Report 21496694 (Version 5)
Quarter: 2022Q4

REPORT INFORMATION
  Report Type: Spontaneous
  Country: FR (occurrence: FR)
  Receive Date: 20221022
  Receipt Date: 20221214
  Transmission Date: 20230113
  Serious: Yes (Hospitalization)
  Sender: FDA-Public Use
  Company Number: None

PATIENT
  Age: 75 Year
  Sex: Male
  Weight: 61 kg

DRUGS (4)
  1. AMIODARONE [Suspect]
     Active Substance: AMIODARONE
     Indication: Arrhythmia
     Dosage: UNIT DOSE : 600 MG  , FREQUENCY TIME : 1 DAY  ,THERAPY END DATE : ASKU
     Dates: start: 2021
  2. OMEPRAZOLE [Suspect]
     Active Substance: OMEPRAZOLE
     Indication: Oesophagitis
     Dosage: UNIT DOSE : 20 MG   , FREQUENCY TIME :  1 DAY  , DURATION : 1 YEARS
     Dates: start: 2021, end: 20220919
  3. ESCITALOPRAM [Suspect]
     Active Substance: ESCITALOPRAM OXALATE
     Indication: Depression
     Dosage: UNIT DOSE :  10 MG    , FREQUENCY TIME : 1 DAY   , DURATION :  1 YEARS
     Dates: start: 202106, end: 20220911
  4. RAMIPRIL [Suspect]
     Active Substance: RAMIPRIL
     Indication: Cardiac failure
     Dosage: UNIT DOSE : 3.75 MG   , FREQUENCY TIME : 1DAY  ,THERAPY END DATE : NASK
     Dates: start: 2021

REACTIONS (1)
  - Inappropriate antidiuretic hormone secretion [Recovered/Resolved]

NARRATIVE: CASE EVENT DATE: 20220911
